FAERS Safety Report 20873738 (Version 1)
Quarter: 2022Q2

REPORT INFORMATION
  Report Type: Spontaneous
  Country: US (occurrence: US)
  Receive Date: 20220525
  Receipt Date: 20220525
  Transmission Date: 20220721
  Serious: No
  Sender: FDA-Public Use
  Company Number: US-ALKERMES INC.-ALK-2022-002442

PATIENT
  Age: 41 Year
  Sex: Female

DRUGS (2)
  1. ARISTADA [Suspect]
     Active Substance: ARIPIPRAZOLE LAUROXIL
     Indication: Schizoaffective disorder
     Dosage: DOSE NOT ADMINISTERED
     Route: 030
     Dates: start: 20220518, end: 20220518
  2. ARISTADA [Suspect]
     Active Substance: ARIPIPRAZOLE LAUROXIL
     Dosage: 441 MILLIGRAM, QMO
     Route: 030
     Dates: start: 2022, end: 2022

REACTIONS (2)
  - Off label use [Not Recovered/Not Resolved]
  - Needle issue [Recovered/Resolved]

NARRATIVE: CASE EVENT DATE: 20220518
